FAERS Safety Report 6876510-4 (Version None)
Quarter: 2010Q3

REPORT INFORMATION
  Report Type: 
  Country: None (occurrence: None)
  Receive Date: 20100727
  Receipt Date: 20100721
  Transmission Date: 20110219
  Serious: Yes (Hospitalization)
  Sender: FDA-Public Use
  Company Number: JP-EISAI INC.-E2020-06853-SPO-JP

PATIENT
  Sex: Male

DRUGS (9)
  1. ARICEPT [Suspect]
     Indication: DEMENTIA ALZHEIMER'S TYPE
     Route: 048
     Dates: start: 20090811, end: 20100608
  2. ARICEPT [Suspect]
     Route: 048
     Dates: start: 20100620
  3. DIGITALIS TAB [Concomitant]
     Indication: ATRIAL FIBRILLATION
     Dates: end: 20100609
  4. SYMMETREL [Concomitant]
     Indication: PARKINSON'S DISEASE
     Route: 048
     Dates: end: 20100609
  5. EC-DOPARL [Concomitant]
     Indication: PARKINSON'S DISEASE
     Route: 048
     Dates: end: 20100609
  6. TENORMIN [Concomitant]
     Indication: ATRIAL FIBRILLATION
     Route: 048
     Dates: end: 20100609
  7. GASTER [Concomitant]
     Route: 048
     Dates: end: 20100609
  8. LUPRAC [Concomitant]
     Route: 048
     Dates: end: 20100609
  9. ASPIRIN [Concomitant]
     Route: 048
     Dates: end: 20100609

REACTIONS (2)
  - BRADYCARDIA [None]
  - ELECTROCARDIOGRAM QT PROLONGED [None]
